FAERS Safety Report 5559459-9 (Version None)
Quarter: 2007Q4

REPORT INFORMATION
  Report Type: 
  Country: None (occurrence: None)
  Receive Date: 20071214
  Receipt Date: 20070927
  Transmission Date: 20080405
  Serious: No
  Sender: FDA-Public Use
  Company Number: US-ABBOTT-07P-163-0419361-00

PATIENT
  Sex: Female
  Weight: 52.21 kg

DRUGS (6)
  1. HUMIRA [Suspect]
     Indication: CROHN'S DISEASE
     Route: 058
     Dates: start: 20070401, end: 20070401
  2. HUMIRA [Suspect]
     Route: 058
     Dates: start: 20070401, end: 20070501
  3. HUMIRA [Suspect]
     Route: 058
     Dates: start: 20070501, end: 20070501
  4. HUMIRA [Suspect]
     Route: 058
     Dates: start: 20070601, end: 20070929
  5. CALCIUM CARBONATE [Concomitant]
     Indication: DYSPEPSIA
     Route: 048
  6. ACETAMINOPHEN [Concomitant]
     Indication: DRUG USE FOR UNKNOWN INDICATION
     Route: 048

REACTIONS (5)
  - COUGH [None]
  - MUSCLE TWITCHING [None]
  - NASOPHARYNGITIS [None]
  - RASH PAPULAR [None]
  - SENSORY DISTURBANCE [None]
